FAERS Safety Report 11790402 (Version 1)
Quarter: 2015Q4

REPORT INFORMATION
  Report Type: Spontaneous
  Country: PK (occurrence: PK)
  Receive Date: 20151201
  Receipt Date: 20151201
  Transmission Date: 20160305
  Serious: Yes (Other)
  Sender: FDA-Public Use
  Company Number: PK-NOVOPROD-471561

PATIENT
  Age: 44 Year
  Sex: Male
  Weight: 118 kg

DRUGS (6)
  1. METFORMIN [Concomitant]
     Active Substance: METFORMIN HYDROCHLORIDE
     Dosage: 1 G, QD
     Route: 048
  2. NOVOMIX 30 FLEXPEN [Suspect]
     Active Substance: INSULIN ASPART
     Indication: TYPE 2 DIABETES MELLITUS
     Dosage: 124 U, QD
     Route: 065
  3. NOVOMIX 30 FLEXPEN [Suspect]
     Active Substance: INSULIN ASPART
     Dosage: 30 U, QD (14 UNITS IN MORNING AND 16 UNITS IN EVENING)
     Route: 065
  4. CO VALTEC [Concomitant]
     Dosage: 160 MG, QD
     Route: 048
  5. NOVOMIX 30 FLEXPEN [Suspect]
     Active Substance: INSULIN ASPART
     Dosage: 24 U, QD
     Route: 065
  6. VICTOZA [Suspect]
     Active Substance: LIRAGLUTIDE
     Indication: TYPE 2 DIABETES MELLITUS
     Dosage: 1.8 U, QD
     Route: 065
     Dates: start: 20151014, end: 20151105

REACTIONS (2)
  - Intraductal papillary-mucinous carcinoma of pancreas [Unknown]
  - Weight decreased [Unknown]
